FAERS Safety Report 8698439 (Version 3)
Quarter: 2012Q4

REPORT INFORMATION
  Report Type: Report from Study
  Country: JP (occurrence: JP)
  Receive Date: 20120802
  Receipt Date: 20121219
  Transmission Date: 20130627
  Serious: Yes (Death, Hospitalization, Other)
  Sender: FDA-Public Use
  Company Number: JP-BAYER-2012-035630

PATIENT
  Age: 71 Year
  Sex: Male
  Weight: 67 kg

DRUGS (17)
  1. NEXAVAR [Suspect]
     Indication: CARCINOMA HEPATOCELLULAR
     Dosage: 400 mg, QD
     Route: 048
     Dates: start: 20120203, end: 20120409
  2. NEXAVAR [Suspect]
     Indication: CARCINOMA HEPATOCELLULAR
     Dosage: 400 mg, QD
     Route: 048
     Dates: start: 20120427, end: 20120608
  3. PORTOLAC [Concomitant]
     Dosage: Daily dose 36 g
     Route: 048
  4. LIVACT [Concomitant]
     Dosage: Daily dose 12.45 g
     Route: 048
  5. OMEPRAL [Concomitant]
     Dosage: Daily dose 20 mg
     Route: 048
  6. SHAKUYAKUKANZOUTOU [Concomitant]
     Dosage: 7.5 g, QD
     Route: 048
  7. PASTARON [Concomitant]
     Dosage: UNK
     Route: 061
  8. ADALAT CR [Concomitant]
     Indication: HYPERTENSION
     Dosage: Daily dose 20 mg
     Route: 048
     Dates: start: 20120207, end: 20120217
  9. ADALAT CR [Concomitant]
     Indication: HYPERTENSION
     Dosage: 40 mg, QD
     Route: 048
     Dates: start: 20120218, end: 20120414
  10. ADALAT CR [Concomitant]
     Indication: HYPERTENSION
     Dosage: 20 mg, QD
     Route: 048
     Dates: start: 20120415, end: 20120619
  11. PURSENNID [Concomitant]
     Dosage: Daily dose 24 mg
     Route: 048
     Dates: start: 20120207
  12. MAGMITT [Concomitant]
     Dosage: Daily dose 990 mg
     Route: 048
     Dates: start: 20120210, end: 20120217
  13. ALBUMIN [Concomitant]
     Dosage: UNK
     Route: 042
     Dates: start: 20120407, end: 20120409
  14. LASIX [Concomitant]
     Dosage: 20 mg, QD
     Route: 042
     Dates: start: 20120407, end: 20120411
  15. LASIX [Concomitant]
     Dosage: 40 mg, QD
     Route: 048
     Dates: end: 20120713
  16. MIRACLID [Concomitant]
     Dosage: 100000 U
     Route: 042
     Dates: start: 20120407, end: 20120409
  17. HEPAN ED [Concomitant]
     Dosage: 80 g, QD
     Route: 048
     Dates: start: 20120525, end: 20120713

REACTIONS (4)
  - Ascites [Recovering/Resolving]
  - Hypertension [Recovering/Resolving]
  - Hepatocellular carcinoma [Fatal]
  - Ascites [Not Recovered/Not Resolved]
